FAERS Safety Report 10934433 (Version 1)
Quarter: 2015Q1

REPORT INFORMATION
  Report Type: Spontaneous
  Country: FR (occurrence: FR)
  Receive Date: 20150320
  Receipt Date: 20150320
  Transmission Date: 20150721
  Serious: Yes (Hospitalization)
  Sender: FDA-Public Use
  Company Number: FR-PFIZER INC-2015093301

PATIENT
  Age: 43 Year
  Sex: Female

DRUGS (17)
  1. FARMORUBICINE [Suspect]
     Active Substance: EPIRUBICIN HYDROCHLORIDE
     Dosage: 144 MG ONCE IN 15 DAYS
     Route: 041
     Dates: start: 20150112
  2. FARMORUBICINE [Suspect]
     Active Substance: EPIRUBICIN HYDROCHLORIDE
     Dosage: 144 MG ONCE IN 15 DAYS
     Route: 041
     Dates: start: 20150127
  3. FARMORUBICINE [Suspect]
     Active Substance: EPIRUBICIN HYDROCHLORIDE
     Dosage: 144 MG ONCE IN 15 DAYS
     Route: 041
     Dates: start: 20141229
  4. LUMIGAN [Concomitant]
     Active Substance: BIMATOPROST
     Indication: GLAUCOMA
     Dosage: UNK
     Dates: end: 20150210
  5. EMEND [Concomitant]
     Active Substance: APREPITANT
     Indication: PREMEDICATION
     Dosage: UNK
  6. MOPRAL [Concomitant]
     Active Substance: OMEPRAZOLE SODIUM
     Dosage: 20 MG, DAILY
     Dates: start: 20141211, end: 20150210
  7. FARMORUBICINE [Suspect]
     Active Substance: EPIRUBICIN HYDROCHLORIDE
     Indication: BREAST CANCER
     Dosage: 144 MG ONCE IN 15 DAYS
     Route: 041
     Dates: start: 20141211
  8. ENDOXAN [Suspect]
     Active Substance: CYCLOPHOSPHAMIDE
     Dosage: 1140 MG, ONCE IN 15 DAYS
     Route: 041
     Dates: start: 20141229
  9. ENDOXAN [Suspect]
     Active Substance: CYCLOPHOSPHAMIDE
     Dosage: 1140 MG, ONCE IN 15 DAYS
     Route: 041
     Dates: start: 20150112
  10. DEXAMETHASONE. [Concomitant]
     Active Substance: DEXAMETHASONE
     Indication: PREMEDICATION
     Dosage: 20 MG, UNK
     Route: 042
  11. PARACETAMOL [Concomitant]
     Active Substance: ACETAMINOPHEN
     Indication: HEADACHE
     Dosage: UNK, AS NEEDED
     Dates: end: 20150210
  12. MOTILIUM [Concomitant]
     Active Substance: DOMPERIDONE
     Dosage: UNK
     Dates: end: 20150210
  13. ENDOXAN [Suspect]
     Active Substance: CYCLOPHOSPHAMIDE
     Indication: BREAST CANCER
     Dosage: 1140 MG, ONCE IN 15 DAYS
     Route: 041
     Dates: start: 20141211
  14. TEVAGRASTIM [Concomitant]
     Active Substance: FILGRASTIM
     Dosage: UNK
     Dates: end: 20150210
  15. ENDOXAN [Suspect]
     Active Substance: CYCLOPHOSPHAMIDE
     Dosage: 1140 MG, ONCE IN 15 DAYS
     Route: 041
     Dates: start: 20150127
  16. ONDANSETRON [Concomitant]
     Active Substance: ONDANSETRON
     Indication: PREMEDICATION
     Dosage: 8 MG, UNK
     Route: 042
  17. CORTANCYL [Concomitant]
     Active Substance: PREDNISONE
     Dosage: 20 MG, DAILY
     Dates: end: 20150210

REACTIONS (1)
  - Herpes simplex hepatitis [Recovered/Resolved]

NARRATIVE: CASE EVENT DATE: 201502
